FAERS Safety Report 7077517-7 (Version None)
Quarter: 2010Q4

REPORT INFORMATION
  Report Type: 
  Country: None (occurrence: None)
  Receive Date: 20101101
  Receipt Date: 20101101
  Transmission Date: 20110411
  Serious: Yes (Disabling)
  Sender: FDA-Public Use
  Company Number: AU-WYE-G06886410

PATIENT
  Sex: Female

DRUGS (2)
  1. EFFEXOR XR [Suspect]
     Dosage: 75MG
     Dates: start: 20101026
  2. EFFEXOR XR [Suspect]
     Dosage: 150MG

REACTIONS (7)
  - ASTHENIA [None]
  - BEDRIDDEN [None]
  - HYPERHIDROSIS [None]
  - MALAISE [None]
  - TEMPERATURE REGULATION DISORDER [None]
  - TREMOR [None]
  - VOMITING [None]
